FAERS Safety Report 21937522 (Version 1)
Quarter: 2023Q1

REPORT INFORMATION
  Report Type: Spontaneous
  Country: PE (occurrence: PE)
  Receive Date: 20230201
  Receipt Date: 20230201
  Transmission Date: 20230418
  Serious: Yes (Death, Other)
  Sender: FDA-Public Use
  Company Number: PE-SA-2023SA034892

PATIENT
  Age: 5 Year
  Sex: Male

DRUGS (3)
  1. ANTI-THYMOCYTE GLOBULIN (RABBIT) NOS [Suspect]
     Active Substance: LAPINE T-LYMPHOCYTE IMMUNE GLOBULIN
     Indication: Bone marrow conditioning regimen
     Dosage: UNK
  2. FLUDARABINE PHOSPHATE [Suspect]
     Active Substance: FLUDARABINE PHOSPHATE
     Indication: Bone marrow conditioning regimen
     Dosage: UNK
  3. CYCLOPHOSPHAMIDE [Suspect]
     Active Substance: CYCLOPHOSPHAMIDE
     Indication: Bone marrow conditioning regimen
     Dosage: UNK

REACTIONS (18)
  - Fungal infection [Fatal]
  - Spirochaetal infection [Fatal]
  - Arthralgia [Fatal]
  - Pyrexia [Fatal]
  - Renal impairment [Fatal]
  - Swelling of eyelid [Fatal]
  - Stomatitis [Fatal]
  - Abdominal pain [Fatal]
  - Rash maculo-papular [Fatal]
  - Septic shock [Fatal]
  - Neutropenic colitis [Unknown]
  - Febrile neutropenia [Unknown]
  - Neutropenia [Unknown]
  - Pyrexia [Unknown]
  - Appendicitis [Unknown]
  - Bronchopulmonary aspergillosis [Unknown]
  - Device related infection [Unknown]
  - Off label use [Unknown]
